FAERS Safety Report 9466839 (Version 4)
Quarter: 2013Q3

REPORT INFORMATION
  Report Type: Report from Study
  Country: JP (occurrence: JP)
  Receive Date: 20130820
  Receipt Date: 20130925
  Transmission Date: 20140515
  Serious: Yes (Death, Hospitalization)
  Sender: FDA-Public Use
  Company Number: JP-B.I. PHARMACEUTICALS,INC./RIDGEFIELD-2013-BI-25259NB

PATIENT
  Age: 71 Year
  Sex: Female
  Weight: 55.7 kg

DRUGS (13)
  1. PRAZAXA [Suspect]
     Indication: ATRIAL FIBRILLATION
     Dosage: 220 MG
     Route: 048
     Dates: start: 20121205, end: 20130812
  2. PRAZAXA [Suspect]
     Indication: ISCHAEMIC HEART DISEASE PROPHYLAXIS
  3. PRAZAXA [Suspect]
     Indication: THROMBOSIS PROPHYLAXIS
  4. DIOVAN [Concomitant]
     Dosage: 160 MG
     Route: 048
     Dates: end: 20130812
  5. ATELEC [Concomitant]
     Dosage: 20 MG
     Route: 048
     Dates: end: 20130812
  6. DAONIL [Concomitant]
     Dosage: 7.5 MG
     Route: 048
     Dates: end: 20130812
  7. BASEN OD [Concomitant]
     Dosage: 1.8 MG
     Route: 048
     Dates: end: 20130812
  8. METGLUCO [Concomitant]
     Dosage: 750 MG
     Route: 048
     Dates: end: 20130812
  9. ACTOS [Concomitant]
     Dosage: 15 MG
     Route: 048
     Dates: end: 20130812
  10. GASRICK [Concomitant]
     Dosage: 20 MG
     Route: 048
     Dates: end: 20130812
  11. MUCOSTA [Concomitant]
     Dosage: 1.5 MG
     Route: 048
     Dates: end: 20130812
  12. SUNRYTHM [Concomitant]
     Indication: ATRIAL FIBRILLATION
     Dosage: 100 MG
     Route: 048
     Dates: end: 20130812
  13. GLACTIV [Concomitant]
     Dosage: 50 MG
     Route: 048
     Dates: start: 20130515, end: 20130812

REACTIONS (2)
  - Acute myocardial infarction [Fatal]
  - Diabetes mellitus [Recovered/Resolved]
